FAERS Safety Report 5981209-2 (Version None)
Quarter: 2008Q4

REPORT INFORMATION
  Report Type: 
  Country: None (occurrence: None)
  Receive Date: 20081205
  Receipt Date: 20081128
  Transmission Date: 20090506
  Serious: Yes (Hospitalization)
  Sender: FDA-Public Use
  Company Number: B0549120A

PATIENT
  Age: 44 Year
  Sex: Male

DRUGS (6)
  1. VOXRA [Suspect]
     Indication: BIPOLAR I DISORDER
     Dosage: 150MG PER DAY
     Route: 048
  2. EFFEXOR [Suspect]
     Indication: BIPOLAR I DISORDER
     Dosage: 150MG PER DAY
     Route: 048
  3. SEROQUEL [Concomitant]
     Route: 065
  4. PROPAVAN [Concomitant]
     Route: 065
  5. SOBRIL [Concomitant]
     Route: 065
  6. ZOLPIDEM TARTRATE [Concomitant]
     Route: 065

REACTIONS (4)
  - AMNESIA [None]
  - ANXIETY [None]
  - CONVULSION [None]
  - HUMERUS FRACTURE [None]
